FAERS Safety Report 11663437 (Version 1)
Quarter: 2015Q4

REPORT INFORMATION
  Report Type: Spontaneous
  Country: US (occurrence: US)
  Receive Date: 20151027
  Receipt Date: 20151027
  Transmission Date: 20160304
  Serious: No
  Sender: FDA-Public Use
  Company Number: US-PFIZER INC-2015338098

PATIENT
  Age: 64 Year
  Sex: Female

DRUGS (4)
  1. GABAPENTIN. [Suspect]
     Active Substance: GABAPENTIN
     Dosage: 150 MG, 1X/DAY
     Route: 048
     Dates: start: 201509
  2. ENBREL [Suspect]
     Active Substance: ETANERCEPT
     Indication: RHEUMATOID ARTHRITIS
     Dosage: 50 MG, WEEKLY
     Route: 058
  3. GABAPENTIN. [Suspect]
     Active Substance: GABAPENTIN
     Dosage: 300 MG, QD
     Route: 048
     Dates: start: 201509, end: 201509
  4. GABAPENTIN. [Suspect]
     Active Substance: GABAPENTIN
     Indication: NEURALGIA
     Dosage: 100 MG, QD
     Route: 048
     Dates: start: 201508, end: 2015

REACTIONS (8)
  - Drug ineffective [Unknown]
  - Rash [Unknown]
  - Dry mouth [Unknown]
  - Rash macular [Unknown]
  - Skin exfoliation [Unknown]
  - Neuralgia [Unknown]
  - Dry skin [Unknown]
  - Dizziness [Unknown]

NARRATIVE: CASE EVENT DATE: 201505
